FAERS Safety Report 9638746 (Version 3)
Quarter: 2014Q2

REPORT INFORMATION
  Report Type: Spontaneous
  Country: US (occurrence: US)
  Receive Date: 20131022
  Receipt Date: 20140424
  Transmission Date: 20141212
  Serious: Yes (Other)
  Sender: FDA-Public Use
  Company Number: US-BRISTOL-MYERS SQUIBB COMPANY-19220383

PATIENT
  Age: 67 Year
  Sex: Male

DRUGS (8)
  1. ELIQUIS [Suspect]
     Indication: ATRIAL FLUTTER
     Route: 048
     Dates: start: 20130516
  2. ELIQUIS [Suspect]
     Indication: ATRIAL FIBRILLATION
     Route: 048
     Dates: start: 20130516
  3. LOSARTAN POTASSIUM + HCTZ [Concomitant]
     Dosage: 1 DF=50/125
  4. ACETYLSALICYLIC ACID [Concomitant]
     Dosage: 1 DF=81 NO UNITS
  5. METOPROLOL [Concomitant]
  6. NEXIUM [Concomitant]
     Dosage: 1 DF=40 NO UNITS
  7. VALSARTAN [Concomitant]
     Dosage: 1 DF=100 NO UNITS?XR
  8. CRESTOR [Concomitant]
     Dosage: 1 DF=10 NO UNITS

REACTIONS (1)
  - Atrial thrombosis [Recovering/Resolving]
